FAERS Safety Report 6785978-3 (Version None)
Quarter: 2010Q2

REPORT INFORMATION
  Report Type: 
  Country: None (occurrence: None)
  Receive Date: 20100622
  Receipt Date: 20100622
  Transmission Date: 20101027
  Serious: Yes (Life-Threatening, Hospitalization)
  Sender: FDA-Public Use
  Company Number: None

PATIENT
  Age: 61 Year
  Sex: Female
  Weight: 58.9676 kg

DRUGS (2)
  1. EPINEPHRINE [Suspect]
     Indication: ANAESTHESIA
     Dosage: 1 ML 3 SQ
     Route: 058
     Dates: start: 20100602, end: 20100602
  2. LIDOCAINE [Concomitant]

REACTIONS (13)
  - ANAEMIA POSTOPERATIVE [None]
  - BLOOD CREATINE PHOSPHOKINASE INCREASED [None]
  - BLOOD LACTATE DEHYDROGENASE INCREASED [None]
  - CHROMATURIA [None]
  - CONJUNCTIVAL PALLOR [None]
  - DRY EYE [None]
  - INCISION SITE HAEMORRHAGE [None]
  - MUCOSAL DISCOLOURATION [None]
  - MUCOSAL DRYNESS [None]
  - PALLOR [None]
  - PRODUCT MEASURED POTENCY ISSUE [None]
  - PRODUCT QUALITY ISSUE [None]
  - TRANSAMINASES INCREASED [None]
